FAERS Safety Report 25336627 (Version 2)
Quarter: 2025Q4

REPORT INFORMATION
  Report Type: Spontaneous
  Country: US (occurrence: US)
  Receive Date: 20250520
  Receipt Date: 20251010
  Transmission Date: 20260117
  Serious: No
  Sender: LEO PHARM
  Company Number: US-LEO Pharma-379611

PATIENT
  Age: 48 Year
  Sex: Female

DRUGS (6)
  1. ADBRY [Suspect]
     Active Substance: TRALOKINUMAB-LDRM
     Indication: Dermatitis atopic
  2. Coenzyme Q-10 [Concomitant]
     Indication: Product used for unknown indication
     Dosage: SOFTGEL
  3. Probiotic-10 10b [Concomitant]
     Indication: Product used for unknown indication
  4. VITAMIN B12 [Concomitant]
     Active Substance: CYANOCOBALAMIN
     Indication: Product used for unknown indication
  5. FISH OIL [Concomitant]
     Active Substance: FISH OIL
     Indication: Product used for unknown indication
  6. BIOTIN [Concomitant]
     Active Substance: BIOTIN
     Indication: Product used for unknown indication

REACTIONS (7)
  - Ligament rupture [Unknown]
  - Influenza [Recovered/Resolved]
  - Ankle operation [Recovering/Resolving]
  - Tendon rupture [Unknown]
  - Knee operation [Unknown]
  - Ankle fracture [Recovering/Resolving]
  - Lower limb fracture [Unknown]

NARRATIVE: CASE EVENT DATE: 20241001
